FAERS Safety Report 5131413-0 (Version None)
Quarter: 2006Q4

REPORT INFORMATION
  Report Type: 
  Country: None (occurrence: None)
  Receive Date: 20061020
  Receipt Date: 20060711
  Transmission Date: 20070319
  Serious: Yes (Hospitalization)
  Sender: FDA-Public Use
  Company Number: JP-JPN-A200602585

PATIENT
  Age: 44 Year
  Sex: Male
  Weight: 69 kg

DRUGS (10)
  1. PAXIL [Suspect]
     Indication: ANXIETY
     Dosage: 10MG PER DAY
     Route: 048
     Dates: start: 20060516, end: 20060706
  2. MYONAL [Concomitant]
     Route: 048
  3. LENDORMIN [Concomitant]
     Indication: INSOMNIA
     Route: 048
     Dates: start: 20060606
  4. PURSENNID [Concomitant]
     Indication: CONSTIPATION
     Route: 048
     Dates: start: 20060606
  5. FAMOTIDINE [Concomitant]
     Indication: GASTRIC ULCER
     Route: 048
     Dates: start: 20060622
  6. VOLTAREN [Concomitant]
     Indication: PAIN
     Route: 054
     Dates: start: 20060509
  7. LORCAM [Concomitant]
     Indication: PAIN
     Route: 048
     Dates: start: 20060418
  8. KETOPROFEN [Concomitant]
     Indication: PAIN
     Route: 062
     Dates: start: 20051115
  9. UNKNOWN DRUG [Concomitant]
     Dates: start: 20060630
  10. IOHEXOL [Concomitant]
     Dates: start: 20060628

REACTIONS (7)
  - ASPARTATE AMINOTRANSFERASE INCREASED [None]
  - BLOOD CREATINE PHOSPHOKINASE INCREASED [None]
  - CONVULSIONS LOCAL [None]
  - HYPOAESTHESIA [None]
  - NEUROLEPTIC MALIGNANT SYNDROME [None]
  - PAIN [None]
  - SEROTONIN SYNDROME [None]
